FAERS Safety Report 19849423 (Version 1)
Quarter: 2021Q3

REPORT INFORMATION
  Report Type: Spontaneous
  Country: NL (occurrence: NL)
  Receive Date: 20210917
  Receipt Date: 20210917
  Transmission Date: 20211014
  Serious: Yes (Other)
  Sender: FDA-Public Use
  Company Number: NL-TEVA-2021-NL-1946785

PATIENT
  Age: 18 Year
  Sex: Female
  Weight: 46 kg

DRUGS (4)
  1. IBUPROFEN GRANULAAT 600MG / IBUPROFEN SANDOZ GRANULAAT 600MG IN SACHET [Concomitant]
     Dosage: 1800 MILLIGRAM DAILY; 600MG IBUPROFEN 3 TIMES A DAYTHERAPY START DATE :THERAPY END DATE:ASKU ; IN SA
  2. TRAMADOL DRUPPELS 100MG/ML / BRAND NAME NOT SPECIFIED [Suspect]
     Active Substance: TRAMADOL
     Dosage: 20 DROPS OF TRAMADOL, THERAPY END DATE :ASKU
     Route: 065
     Dates: start: 20210626
  3. PARACETAMOL ZETPIL 1000MG / BRAND NAME NOT SPECIFIED [Suspect]
     Active Substance: ACETAMINOPHEN
     Dosage: 1000MG PARACETAMOL, BOTH 4X A DAY, THERAPY END DATE :ASKU
     Route: 065
     Dates: start: 20210626
  4. ETHINYLESTRA/ETONO RING 15/120MCG/24U (2,7/11,7MG) / NUVARING RING VAG [Concomitant]
     Dosage: VAGINAL DELIVERY SYSTEM, 15/120 MCG/HR (MICROGRAMS PER 24 HOURS)THERAPY START DATE:THERAPY END DATE
     Route: 067

REACTIONS (7)
  - Nausea [Recovered/Resolved]
  - Myalgia [Recovered/Resolved]
  - Malaise [Recovering/Resolving]
  - Hyperpyrexia [Recovered/Resolved]
  - Headache [Recovered/Resolved]
  - Fatigue [Recovering/Resolving]
  - Chills [Recovered/Resolved]

NARRATIVE: CASE EVENT DATE: 20210705
